FAERS Safety Report 6028125-8 (Version None)
Quarter: 2009Q1

REPORT INFORMATION
  Report Type: 
  Country: None (occurrence: None)
  Receive Date: 20090105
  Receipt Date: 20090105
  Transmission Date: 20090719
  Serious: No
  Sender: FDA-Public Use
  Company Number: None

PATIENT
  Age: 49 Year
  Sex: Male
  Weight: 122.0176 kg

DRUGS (5)
  1. TRAMADOL HCL [Suspect]
     Indication: ARTHRALGIA
     Dosage: TAKE 1 TABLET PER DAY INGESTED
     Dates: start: 20081015, end: 20081114
  2. TRAMADOL HCL [Suspect]
     Indication: ARTHRALGIA
     Dosage: TAKE 1 TABLET PER DAY INGESTED
     Dates: start: 20081015, end: 20081114
  3. CARBAMAZEPINE [Suspect]
     Indication: EUPHORIC MOOD
     Dosage: 2 TABLETS TWICE PER DAY INGESTED
     Dates: start: 20081028, end: 20081128
  4. OXYCODONE HCL [Suspect]
  5. DEMEROL [Suspect]

REACTIONS (4)
  - HEADACHE [None]
  - MIGRAINE [None]
  - VERTIGO [None]
  - VISION BLURRED [None]
